FAERS Safety Report 5151919-8 (Version None)
Quarter: 2006Q4

REPORT INFORMATION
  Report Type: 
  Country: None (occurrence: None)
  Receive Date: 20061107
  Receipt Date: 20061027
  Transmission Date: 20070319
  Serious: Yes (Hospitalization)
  Sender: FDA-Public Use
  Company Number: 200610793

PATIENT
  Age: 77 Year
  Sex: Male
  Weight: 70 kg

DRUGS (12)
  1. SANDOGLOBULIN [Suspect]
     Indication: MULTIFOCAL MOTOR NEUROPATHY
     Dosage: SEE IMAGE
     Dates: start: 20061005, end: 20061010
  2. SANDOGLOBULIN [Suspect]
  3. SANDOGLOBULIN [Suspect]
  4. ASPIRIN [Concomitant]
  5. ALLOPURINOL [Concomitant]
  6. TORSEMIDE [Concomitant]
  7. METOPROLOL [Concomitant]
  8. TRAMADOL HCL [Concomitant]
  9. NEXIUM [Concomitant]
  10. ENALAPRIL MALEATE [Concomitant]
  11. PULMICORT [Concomitant]
  12. BERODUAL [Concomitant]

REACTIONS (3)
  - DYSPNOEA [None]
  - GENERAL PHYSICAL HEALTH DETERIORATION [None]
  - RENAL FAILURE ACUTE [None]
